FAERS Safety Report 10152762 (Version 7)
Quarter: 2015Q1

REPORT INFORMATION
  Report Type: Report from Study
  Country: US (occurrence: US)
  Receive Date: 20140505
  Receipt Date: 20150323
  Transmission Date: 20150720
  Serious: Yes (Hospitalization, Other)
  Sender: FDA-Public Use
  Company Number: US-GILEAD-2014-0100574

PATIENT
  Age: 78 Year
  Sex: Male
  Weight: 190 kg

DRUGS (24)
  1. ASCORBIC ACID. [Concomitant]
     Active Substance: ASCORBIC ACID
  2. VITAMIN D3 [Concomitant]
     Active Substance: CHOLECALCIFEROL
  3. SPIRONOLACTONE. [Concomitant]
     Active Substance: SPIRONOLACTONE
  4. OXYCODONE AND ACETAMINOPHEN [Concomitant]
     Active Substance: ACETAMINOPHEN\OXYCODONE\OXYCODONE HYDROCHLORIDE
  5. PROVENTIL                          /00139501/ [Concomitant]
  6. SYMBICORT [Concomitant]
     Active Substance: BUDESONIDE\FORMOTEROL FUMARATE DIHYDRATE
  7. SPIRIVA [Concomitant]
     Active Substance: TIOTROPIUM BROMIDE MONOHYDRATE
  8. VITAMIN E NOS [Concomitant]
  9. AMBRISENTAN [Suspect]
     Active Substance: AMBRISENTAN
     Indication: PULMONARY ARTERIAL HYPERTENSION
     Dosage: 10 MG, QD
     Route: 065
     Dates: start: 20111111
  10. ASPIRIN                            /00002701/ [Concomitant]
     Active Substance: ASPIRIN
  11. ALBUTEROL                          /00139501/ [Concomitant]
     Active Substance: ALBUTEROL
  12. FLUTICASONE [Concomitant]
     Active Substance: FLUTICASONE\FLUTICASONE PROPIONATE
  13. LEVOTHYROXINE [Concomitant]
     Active Substance: LEVOTHYROXINE
  14. TETRACYCLINE [Concomitant]
     Active Substance: TETRACYCLINE
  15. BACITRACIN. [Concomitant]
     Active Substance: BACITRACIN
  16. AMBRISENTAN [Suspect]
     Active Substance: AMBRISENTAN
     Indication: CORONARY ARTERY DISEASE
  17. SUDAFED [Concomitant]
     Active Substance: PSEUDOEPHEDRINE HYDROCHLORIDE
  18. METOPROLOL SUCCINATE. [Concomitant]
     Active Substance: METOPROLOL SUCCINATE
  19. ATORVASTATIN [Concomitant]
     Active Substance: ATORVASTATIN
  20. FUROSEMIDE. [Concomitant]
     Active Substance: FUROSEMIDE
  21. ATROVENT [Concomitant]
     Active Substance: IPRATROPIUM BROMIDE
  22. OMEPRAZOLE. [Concomitant]
     Active Substance: OMEPRAZOLE
  23. LATANOPROST. [Concomitant]
     Active Substance: LATANOPROST
  24. L-LYSINE                           /00919901/ [Concomitant]

REACTIONS (5)
  - Dyspnoea [Unknown]
  - Oropharyngeal pain [Unknown]
  - Fatigue [Unknown]
  - Laryngeal cancer [Unknown]
  - Throat cancer [Unknown]
